FAERS Safety Report 18878937 (Version 74)
Quarter: 2025Q3

REPORT INFORMATION
  Report Type: Report from Study
  Country: CO (occurrence: CO)
  Receive Date: 20210211
  Receipt Date: 20250911
  Transmission Date: 20251021
  Serious: Yes (Other)
  Sender: TAKEDA
  Company Number: CO-TAKEDA-CO201917806

PATIENT
  Age: 5 Year
  Sex: Male
  Weight: 17 kg

DRUGS (12)
  1. IDURSULFASE [Suspect]
     Active Substance: IDURSULFASE
     Indication: Mucopolysaccharidosis II
     Dosage: 12 MILLIGRAM, 1/WEEK
     Dates: start: 201808
  2. IDURSULFASE [Suspect]
     Active Substance: IDURSULFASE
     Dosage: UNK UNK, 1/WEEK
     Dates: start: 20180914
  3. IDURSULFASE [Suspect]
     Active Substance: IDURSULFASE
     Dosage: 14 MILLIGRAM, 1/WEEK
     Dates: start: 20240504
  4. IDURSULFASE [Suspect]
     Active Substance: IDURSULFASE
     Dosage: 12 MILLIGRAM, 1/WEEK
  5. IDURSULFASE [Suspect]
     Active Substance: IDURSULFASE
     Dosage: 14 MILLIGRAM, QD
  6. IDURSULFASE [Suspect]
     Active Substance: IDURSULFASE
  7. IDURSULFASE [Suspect]
     Active Substance: IDURSULFASE
     Dosage: 14 MILLIGRAM, 1/WEEK
  8. IDURSULFASE [Suspect]
     Active Substance: IDURSULFASE
     Dosage: 14 MILLIGRAM, 1/WEEK
  9. IDURSULFASE [Suspect]
     Active Substance: IDURSULFASE
     Dosage: 1 DOSAGE FORM, 1/WEEK
  10. IDURSULFASE [Suspect]
     Active Substance: IDURSULFASE
     Dosage: 16.5 MILLIGRAM, 1/WEEK
  11. IDURSULFASE [Suspect]
     Active Substance: IDURSULFASE
     Dosage: 18.5 MILLIGRAM, 1/WEEK
  12. RISPERIDONE [Concomitant]
     Active Substance: RISPERIDONE

REACTIONS (40)
  - Influenza [Not Recovered/Not Resolved]
  - Respiratory symptom [Unknown]
  - Rhinorrhoea [Not Recovered/Not Resolved]
  - Poor venous access [Unknown]
  - Puncture site pain [Not Recovered/Not Resolved]
  - Arthropod bite [Unknown]
  - Puncture site inflammation [Not Recovered/Not Resolved]
  - Gastroenteritis [Unknown]
  - Febrile infection [Unknown]
  - Rash [Unknown]
  - Headache [Unknown]
  - Treatment noncompliance [Unknown]
  - Respiratory tract infection [Not Recovered/Not Resolved]
  - Weight increased [Unknown]
  - Body height increased [Unknown]
  - Restlessness [Recovering/Resolving]
  - Inflammation [Recovering/Resolving]
  - Administration site extravasation [Recovering/Resolving]
  - Influenza like illness [Recovering/Resolving]
  - Nasal congestion [Not Recovered/Not Resolved]
  - Oropharyngeal plaque [Recovering/Resolving]
  - Malaise [Recovering/Resolving]
  - Gait disturbance [Unknown]
  - Peroneal nerve palsy [Unknown]
  - Viral infection [Recovering/Resolving]
  - Tonsillitis [Not Recovered/Not Resolved]
  - Decreased appetite [Recovered/Resolved]
  - Productive cough [Not Recovered/Not Resolved]
  - Product availability issue [Unknown]
  - Product dose omission issue [Recovered/Resolved]
  - Product prescribing error [Unknown]
  - Incorrect dose administered [Unknown]
  - Inappropriate schedule of product administration [Unknown]
  - Product use issue [Unknown]
  - Insurance issue [Unknown]
  - Diarrhoea [Recovering/Resolving]
  - Infusion related reaction [Recovering/Resolving]
  - Cough [Not Recovered/Not Resolved]
  - Pyrexia [Not Recovered/Not Resolved]
  - Vomiting [Recovered/Resolved]

NARRATIVE: CASE EVENT DATE: 20190522
